FAERS Safety Report 9805302 (Version 2)
Quarter: 2014Q2

REPORT INFORMATION
  Report Type: Spontaneous
  Country: MY (occurrence: None)
  Receive Date: 20140106
  Receipt Date: 20140603
  Transmission Date: 20141212
  Serious: Yes (Other)
  Sender: FDA-Public Use
  Company Number: 2013-MY-005027

PATIENT
  Age: 10 Year
  Sex: Male

DRUGS (2)
  1. ERWINASE [Suspect]
     Indication: LEUKAEMIA
     Dosage: 50,000 IU (50 KU)
     Route: 042
  2. GRANISETRON (GRANISETRON) [Concomitant]

REACTIONS (1)
  - Hypotension [None]
